FAERS Safety Report 7738819-1 (Version None)
Quarter: 2011Q3

REPORT INFORMATION
  Report Type: 
  Country: None (occurrence: None)
  Receive Date: 20110909
  Receipt Date: 20110901
  Transmission Date: 20111222
  Serious: Yes (Other)
  Sender: FDA-Public Use
  Company Number: NL-AMGEN-NLDSP2011045453

PATIENT
  Age: 64 Year
  Sex: Female

DRUGS (9)
  1. SUCRALFATE [Concomitant]
     Dosage: UNK
  2. MICARDIS [Concomitant]
     Dosage: UNK
  3. PANTOPRAZOL                        /01263202/ [Concomitant]
     Dosage: UNK
  4. SIMVASTATIN [Concomitant]
     Dosage: UNK
  5. LEVOTHYROXINE SODIUM [Concomitant]
     Dosage: UNK
  6. DICLOFENAC SODIUM [Concomitant]
     Dosage: UNK
  7. ENBREL [Suspect]
     Indication: RHEUMATOID ARTHRITIS
     Dosage: 50 MG, WEEKLY
     Dates: start: 20061001
  8. IMODIUM [Concomitant]
     Dosage: UNK
  9. TRAMADOL HCL [Concomitant]
     Dosage: UNK

REACTIONS (12)
  - NASAL DRYNESS [None]
  - DRY MOUTH [None]
  - HYPERSOMNIA [None]
  - MUSCULOSKELETAL DISCOMFORT [None]
  - DRY EYE [None]
  - DIARRHOEA [None]
  - FALL [None]
  - ANORECTAL DISCOMFORT [None]
  - SYNCOPE [None]
  - ALOPECIA [None]
  - VULVOVAGINAL DRYNESS [None]
  - ECZEMA [None]
